FAERS Safety Report 5138931-X (Version None)
Quarter: 2006Q4

REPORT INFORMATION
  Report Type: 
  Country: None (occurrence: None)
  Receive Date: 20061030
  Receipt Date: 20060504
  Transmission Date: 20070319
  Serious: No
  Sender: FDA-Public Use
  Company Number: US-GLAXOSMITHKLINE-A0606087A

PATIENT
  Sex: Male

DRUGS (1)
  1. ADVAIR HFA [Suspect]
     Indication: WHEEZING
     Route: 055
     Dates: start: 20040101

REACTIONS (4)
  - ABASIA [None]
  - CONDITION AGGRAVATED [None]
  - LUNG DISORDER [None]
  - WHEEZING [None]
